FAERS Safety Report 6471486-6 (Version None)
Quarter: 2009Q4

REPORT INFORMATION
  Report Type: 
  Country: None (occurrence: None)
  Receive Date: 20091203
  Receipt Date: 20080225
  Transmission Date: 20100525
  Serious: Yes (Hospitalization)
  Sender: FDA-Public Use
  Company Number: TR-ELI_LILLY_AND_COMPANY-TR200802006527

PATIENT
  Age: 70 Year
  Sex: Female
  Weight: 40 kg

DRUGS (3)
  1. HUMALOG MIX 75/25 [Suspect]
     Indication: TYPE 2 DIABETES MELLITUS
     Dosage: 10 IU, EACH MORNING
     Route: 058
     Dates: start: 20060101
  2. HUMALOG MIX 75/25 [Suspect]
     Dosage: 20 IU, EACH EVENING
     Route: 058
     Dates: start: 20060101
  3. SULTAMICILLIN TOSILATE [Concomitant]
     Indication: GASTROINTESTINAL INJURY
     Dosage: UNK UNK, 2/D
     Route: 048

REACTIONS (1)
  - DIABETIC FOOT [None]
